APPROVED DRUG PRODUCT: DOXEPIN HYDROCHLORIDE
Active Ingredient: DOXEPIN HYDROCHLORIDE
Strength: EQ 10MG BASE/ML
Dosage Form/Route: CONCENTRATE;ORAL
Application: A075924 | Product #001
Applicant: PHARMACEUTICAL ASSOC INC
Approved: Jan 15, 2004 | RLD: No | RS: No | Type: DISCN